FAERS Safety Report 8993008 (Version 2)
Quarter: 2013Q1

REPORT INFORMATION
  Report Type: Spontaneous
  Country: GB (occurrence: GB)
  Receive Date: 20130102
  Receipt Date: 20130104
  Transmission Date: 20140127
  Serious: Yes (Other)
  Sender: FDA-Public Use
  Company Number: GB-JNJFOC-20121211312

PATIENT
  Age: 26 Year
  Sex: Male
  Weight: 65 kg

DRUGS (7)
  1. DARUNAVIR [Suspect]
     Indication: HIV TEST POSITIVE
     Route: 048
     Dates: start: 20121101, end: 20121206
  2. ETRAVIRINE [Suspect]
     Indication: HIV TEST POSITIVE
     Route: 065
  3. KIVEXA [Suspect]
     Indication: HIV TEST POSITIVE
     Route: 065
  4. ATAZANAVIR [Concomitant]
     Indication: PRODUCT USED FOR UNKNOWN INDICATION
     Route: 065
  5. METOCLOPRAMIDE [Concomitant]
     Indication: PRODUCT USED FOR UNKNOWN INDICATION
     Route: 065
  6. RITONAVIR [Concomitant]
     Indication: PRODUCT USED FOR UNKNOWN INDICATION
     Route: 065
  7. TRUVADA [Concomitant]
     Indication: PRODUCT USED FOR UNKNOWN INDICATION
     Route: 065

REACTIONS (2)
  - Idiopathic thrombocytopenic purpura [Recovered/Resolved]
  - Rash [Unknown]
